FAERS Safety Report 4596420-5 (Version None)
Quarter: 2005Q1

REPORT INFORMATION
  Report Type: 
  Country: None (occurrence: None)
  Receive Date: 20050228
  Receipt Date: 20050215
  Transmission Date: 20050727
  Serious: Yes (Death, Hospitalization, Other)
  Sender: FDA-Public Use
  Company Number: 2005031458

PATIENT
  Age: 70 Year
  Sex: Female
  Weight: 75 kg

DRUGS (7)
  1. ALDACTAZIDE [Suspect]
     Indication: HYPERTENSION
     Dosage: 1 DF (OD), ORAL
     Route: 048
  2. LITHIUM CARBONATE [Concomitant]
  3. METFORMIN HCL [Concomitant]
  4. GLIQUIDONE (GLIQUIDONE) [Concomitant]
  5. INSULIN [Concomitant]
  6. ACETAMINOPHEN [Concomitant]
  7. NSAID'S (NSAID'S) [Concomitant]

REACTIONS (11)
  - ADENOCARCINOMA PANCREAS [None]
  - BACK PAIN [None]
  - BLOOD PRESSURE INCREASED [None]
  - CONFUSIONAL STATE [None]
  - HAEMOGLOBIN INCREASED [None]
  - HYPOCHLORAEMIA [None]
  - HYPOGLYCAEMIA [None]
  - HYPONATRAEMIA [None]
  - MALIGNANT NEOPLASM PROGRESSION [None]
  - METASTASIS [None]
  - THERAPY NON-RESPONDER [None]
